FAERS Safety Report 20798776 (Version 2)
Quarter: 2022Q2

REPORT INFORMATION
  Report Type: Spontaneous
  Country: AT (occurrence: AT)
  Receive Date: 20220507
  Receipt Date: 20220604
  Transmission Date: 20220721
  Serious: Yes (Hospitalization)
  Sender: FDA-Public Use
  Company Number: AT-AMGEN-AUTSP2022022741

PATIENT
  Age: 79 Year
  Sex: Female
  Weight: 60 kg

DRUGS (1)
  1. PROLIA [Suspect]
     Active Substance: DENOSUMAB
     Indication: Osteoporosis
     Dosage: 60 MILLIGRAM
     Route: 058
     Dates: start: 20220204

REACTIONS (10)
  - Hypovolaemia [Recovering/Resolving]
  - Hyponatraemia [Unknown]
  - Red blood cell count decreased [Unknown]
  - Haemoglobin decreased [Unknown]
  - Haematocrit decreased [Unknown]
  - Glomerular filtration rate decreased [Unknown]
  - Immunoglobulins decreased [Unknown]
  - Blood cholesterol increased [Unknown]
  - Orthostatic hypotension [Unknown]
  - Gastritis [Unknown]

NARRATIVE: CASE EVENT DATE: 20220204
